FAERS Safety Report 4448684-6 (Version None)
Quarter: 2004Q3

REPORT INFORMATION
  Report Type: 
  Country: None (occurrence: None)
  Receive Date: 20040909
  Receipt Date: 20040826
  Transmission Date: 20050211
  Serious: Yes (Hospitalization)
  Sender: FDA-Public Use
  Company Number: 24966

PATIENT
  Age: 74 Year
  Sex: Female

DRUGS (4)
  1. FLECAINIDE ACETATE [Suspect]
     Dosage: ORAL
     Route: 048
     Dates: start: 20031206, end: 20031215
  2. BEFIZAL (BEZAFIBRATE) [Suspect]
     Dosage: ORAL
     Route: 048
     Dates: end: 20031215
  3. COAPROVEL (KARVEA HCT) [Suspect]
     Dosage: ORAL
     Route: 048
     Dates: start: 20031206, end: 20031215
  4. ZYLORIC (ALLOPURINIOL) [Suspect]
     Dosage: ORAL
     Route: 048
     Dates: end: 20031215

REACTIONS (8)
  - ANAEMIA [None]
  - CHOLANGITIS [None]
  - CHOLELITHIASIS [None]
  - INFLAMMATION [None]
  - PAIN [None]
  - PANCREATITIS ACUTE [None]
  - PANCREATITIS HAEMORRHAGIC [None]
  - THERAPY NON-RESPONDER [None]
